FAERS Safety Report 9120119 (Version 2)
Quarter: 2013Q1

REPORT INFORMATION
  Report Type: Spontaneous
  Country: JP (occurrence: JP)
  Receive Date: 20130226
  Receipt Date: 20130328
  Transmission Date: 20140127
  Serious: Yes (Hospitalization, Other)
  Sender: FDA-Public Use
  Company Number: JP-PFIZER INC-2013062770

PATIENT
  Age: 75 Year
  Sex: Male
  Weight: 72.5 kg

DRUGS (12)
  1. FLIVAS OD [Concomitant]
     Indication: BENIGN PROSTATIC HYPERPLASIA
     Dosage: 75 MG, 1X/DAY
     Route: 048
  2. STAYBLA [Concomitant]
     Indication: BENIGN PROSTATIC HYPERPLASIA
     Dosage: 0.1 MG, 2X/DAY
     Route: 050
  3. AZULFIDINE EN [Suspect]
     Indication: RHEUMATOID ARTHRITIS
     Dosage: 500 MG, 2X/DAY
     Route: 048
     Dates: start: 20121227, end: 20130131
  4. RHEUMATREX [Suspect]
     Indication: RHEUMATOID ARTHRITIS
     Dosage: 6 MG, WEEKLY
     Route: 048
     Dates: start: 20130124, end: 20130131
  5. URSO [Concomitant]
     Indication: HEPATITIS
     Dosage: 200 MG, 3X/DAY
     Route: 048
  6. PARIET [Concomitant]
     Indication: GASTRIC ULCER
     Dosage: 10 MG, 1X/DAY
     Route: 048
  7. JIMROST [Concomitant]
     Indication: HYPERTENSION
     Dosage: 20 MG, 1X/DAY
     Route: 048
  8. BUFFERIN [Concomitant]
     Indication: ATRIAL FIBRILLATION
     Dosage: 81 MG, 1X/DAY
     Route: 048
  9. WARFARIN [Concomitant]
     Indication: ATRIAL FIBRILLATION
     Dosage: 2 MG, 1X/DAY
     Route: 048
  10. VASOLAN [Concomitant]
     Indication: ATRIAL FIBRILLATION
     Dosage: 40 MG, 3X/DAY
     Route: 048
  11. YOUCOBAL [Concomitant]
     Indication: DIABETIC NEUROPATHY
     Dosage: 0.5 MG, 3X/DAY
     Route: 048
  12. BITAFANT F [Concomitant]
     Indication: DIABETIC NEUROPATHY
     Dosage: 25 MG, 3X/DAY
     Route: 048

REACTIONS (9)
  - Hepatic function abnormal [Recovering/Resolving]
  - Rash [Recovering/Resolving]
  - Pharyngitis [Recovering/Resolving]
  - Tongue discolouration [Recovering/Resolving]
  - Tonsillitis [Recovering/Resolving]
  - Malaise [None]
  - Alanine aminotransferase increased [None]
  - Aspartate aminotransferase increased [None]
  - Blood alkaline phosphatase increased [None]
